FAERS Safety Report 4331359-1 (Version None)
Quarter: 2004Q1

REPORT INFORMATION
  Report Type: 
  Country: None (occurrence: None)
  Receive Date: 20040329
  Receipt Date: 20031107
  Transmission Date: 20041129
  Serious: Yes (Hospitalization, Other)
  Sender: FDA-Public Use
  Company Number: 430032P03USA

PATIENT
  Age: 30 Year
  Sex: Male
  Weight: 109 kg

DRUGS (4)
  1. NOVANTRONE [Suspect]
     Dosage: 21 MG, 1 IN 3 MONTHS, INTRAVENOUS
     Route: 042
     Dates: start: 20010626, end: 20030730
  2. INTERFERON BETA [Concomitant]
  3. ALENDRONATE SODIUM [Concomitant]
  4. PAROXETINE HCL [Concomitant]

REACTIONS (2)
  - EJECTION FRACTION DECREASED [None]
  - VENTRICULAR HYPOKINESIA [None]
